FAERS Safety Report 4743940-6 (Version None)
Quarter: 2005Q3

REPORT INFORMATION
  Report Type: 
  Country: None (occurrence: None)
  Receive Date: 20050809
  Receipt Date: 20050802
  Transmission Date: 20060218
  Serious: Yes (Death)
  Sender: FDA-Public Use
  Company Number: 2005111286

PATIENT
  Age: 82 Year
  Sex: Male

DRUGS (5)
  1. ATORVASTATIN CALCIUM [Suspect]
     Indication: LIPIDS INCREASED
     Dosage: 80 MG, ORAL
     Route: 048
     Dates: start: 20050301, end: 20050701
  2. LANSOPRAZOLE [Concomitant]
  3. CLOPIDOGREL BISULFATE [Concomitant]
  4. BISOPROLOL (BISOPROLOL) [Concomitant]
  5. ISOSORBIDE MONONITRATE [Concomitant]

REACTIONS (1)
  - RHABDOMYOLYSIS [None]
